FAERS Safety Report 15106027 (Version 1)
Quarter: 2018Q3

REPORT INFORMATION
  Report Type: Spontaneous
  Country: PT (occurrence: PT)
  Receive Date: 20180704
  Receipt Date: 20180704
  Transmission Date: 20181010
  Serious: Yes (Hospitalization)
  Sender: FDA-Public Use
  Company Number: PT-TEVA-2018-PT-919191

PATIENT
  Age: 67 Year
  Sex: Male

DRUGS (17)
  1. BUDESONIDE. [Interacting]
     Active Substance: BUDESONIDE
     Route: 065
  2. SITAGLIPTIN [Interacting]
     Active Substance: SITAGLIPTIN
     Route: 065
  3. CHLORELLA VULGARIS [Interacting]
     Active Substance: CHLORELLA VULGARIS
     Indication: SUPPLEMENTATION THERAPY
     Dosage: 520 MILLIGRAM DAILY;
     Route: 065
  4. METFORMIN [Concomitant]
     Active Substance: METFORMIN HYDROCHLORIDE
     Route: 065
  5. ATORVASTATIN [Concomitant]
     Active Substance: ATORVASTATIN
     Route: 065
  6. FORMOTEROL [Concomitant]
     Active Substance: FORMOTEROL
     Route: 065
  7. ZINC SULFATE [Concomitant]
     Active Substance: ZINC SULFATE\ZINC SULFATE ANHYDROUS
     Indication: SUPPLEMENTATION THERAPY
     Route: 048
  8. SELENIUM [Concomitant]
     Active Substance: SELENIUM
     Indication: SUPPLEMENTATION THERAPY
     Route: 048
  9. TIOTROPIUM BROMIDE [Concomitant]
     Active Substance: TIOTROPIUM BROMIDE
     Route: 065
  10. VITAMIN?A [Concomitant]
     Active Substance: VITAMIN A
     Indication: SUPPLEMENTATION THERAPY
     Route: 048
  11. COLOSTRUM [Concomitant]
     Indication: SUPPLEMENTATION THERAPY
     Dosage: 650 MILLIGRAM DAILY; TAKEN ONLY FOR ABOUT ONE WEEK
     Route: 065
  12. CARBOPLATIN. [Concomitant]
     Active Substance: CARBOPLATIN
     Indication: LUNG ADENOCARCINOMA
     Route: 065
  13. ALFUZOSIN [Concomitant]
     Active Substance: ALFUZOSIN
     Route: 065
  14. VITAMIN C [Concomitant]
     Active Substance: ASCORBIC ACID
     Indication: SUPPLEMENTATION THERAPY
     Route: 048
  15. MILK THISTLE [Interacting]
     Active Substance: DIETARY SUPPLEMENT\HERBALS\MILK THISTLE
     Indication: SUPPLEMENTATION THERAPY
     Dosage: 13.5 MILLIGRAM DAILY; ADMINISTERED 30 MIN BEFORE MEALS; 300MG WITH 1.5% OF SILYMARIN/3 X DAY ? EQ TO
     Route: 048
  16. PACLITAXEL. [Suspect]
     Active Substance: PACLITAXEL
     Indication: LUNG ADENOCARCINOMA
     Dosage: BI?MONTHLY FREQUENCY
     Route: 065
  17. VITAMIN?E [Concomitant]
     Indication: SUPPLEMENTATION THERAPY
     Route: 048

REACTIONS (8)
  - Toxicity to various agents [Recovered/Resolved]
  - Erythema [Recovered/Resolved]
  - Food interaction [Recovered/Resolved]
  - Skin disorder [Recovered/Resolved]
  - Hepatotoxicity [Recovered/Resolved]
  - Product contamination microbial [Recovered/Resolved]
  - Pruritus [Recovered/Resolved]
  - Drug interaction [Recovered/Resolved]
